FAERS Safety Report 12389568 (Version 1)
Quarter: 2016Q2

REPORT INFORMATION
  Report Type: Spontaneous
  Country: DE (occurrence: DE)
  Receive Date: 20160520
  Receipt Date: 20160520
  Transmission Date: 20160815
  Serious: Yes (Hospitalization)
  Sender: FDA-Public Use
  Company Number: DE-BAYER-2016-095012

PATIENT
  Age: 41 Year
  Sex: Male
  Weight: 100 kg

DRUGS (2)
  1. GADOVIST [Suspect]
     Active Substance: GADOBUTROL
     Indication: NUCLEAR MAGNETIC RESONANCE IMAGING
     Dosage: 7.5 ML, ONCE
     Route: 042
     Dates: start: 20160513, end: 20160513
  2. GADOVIST [Suspect]
     Active Substance: GADOBUTROL
     Indication: LIGAMENT DISORDER

REACTIONS (3)
  - Blood pressure decreased [None]
  - Circulatory collapse [None]
  - Heart rate decreased [None]

NARRATIVE: CASE EVENT DATE: 20160513
